FAERS Safety Report 9377433 (Version 1)
Quarter: 2013Q3

REPORT INFORMATION
  Report Type: Spontaneous
  Country: FR (occurrence: FR)
  Receive Date: 20130701
  Receipt Date: 20130701
  Transmission Date: 20140515
  Serious: Yes (Other)
  Sender: FDA-Public Use
  Company Number: FR-GE HEALTHCARE MEDICAL DIAGNOSTICS-OSCN-NO-1306S-0051

PATIENT
  Age: 57 Year
  Sex: Male
  Weight: 85 kg

DRUGS (2)
  1. OMNISCAN [Suspect]
     Indication: MENISCUS INJURY
     Route: 042
     Dates: start: 20130517, end: 20130517
  2. OMNISCAN [Suspect]
     Indication: DIAGNOSTIC PROCEDURE

REACTIONS (2)
  - Oropharyngeal discomfort [Recovering/Resolving]
  - Throat irritation [Recovering/Resolving]
